FAERS Safety Report 6913745-6 (Version None)
Quarter: 2010Q3

REPORT INFORMATION
  Report Type: 
  Country: None (occurrence: None)
  Receive Date: 20100809
  Receipt Date: 20100707
  Transmission Date: 20110219
  Serious: No
  Sender: FDA-Public Use
  Company Number: US-BAYER-201018049BCC

PATIENT
  Age: 77 Year
  Sex: Male
  Weight: 100 kg

DRUGS (6)
  1. ALEVE (CAPLET) [Suspect]
     Indication: PAIN
     Dosage: TOTAL DAILY DOSE: 1760 MG  UNIT DOSE: 220 MG
     Route: 048
     Dates: start: 20100706
  2. CRESTOR [Concomitant]
     Route: 065
  3. GENERIC ASPIRIN 325MG [Concomitant]
     Route: 065
  4. CENTRUM SILVER FOR MEN [Concomitant]
  5. HORMONES FOR PROSTATE CANCER [Concomitant]
     Dosage: ONCE A YEAR
     Route: 065
  6. BICALUTAMIDE [Concomitant]
     Route: 048

REACTIONS (1)
  - PAIN [None]
